FAERS Safety Report 9002877 (Version 1)
Quarter: 2013Q1

REPORT INFORMATION
  Report Type: Spontaneous
  Country: US (occurrence: US)
  Receive Date: 20130108
  Receipt Date: 20130108
  Transmission Date: 20140127
  Serious: No
  Sender: FDA-Public Use
  Company Number: US-PFIZER INC-2013002532

PATIENT
  Sex: 0

DRUGS (2)
  1. SERTRALINE HCL [Suspect]
     Dosage: 50 MG
  2. SERTRALINE HCL [Suspect]
     Dosage: 100MG

REACTIONS (5)
  - Product counterfeit [Unknown]
  - Tablet physical issue [Unknown]
  - Counterfeit drug administered [Unknown]
  - Feeling abnormal [Unknown]
  - Malaise [Unknown]
